FAERS Safety Report 7546256-8 (Version None)
Quarter: 2011Q2

REPORT INFORMATION
  Report Type: 
  Country: None (occurrence: None)
  Receive Date: 20110614
  Receipt Date: 20041020
  Transmission Date: 20111010
  Serious: Yes (Life-Threatening, Hospitalization, Other)
  Sender: FDA-Public Use
  Company Number: PHFR2004GB02839

PATIENT
  Sex: Female

DRUGS (6)
  1. VALPROATE SODIUM [Concomitant]
  2. LANSOPRAZOLE [Concomitant]
  3. GLICLAZIDE [Concomitant]
  4. CLOZAPINE [Suspect]
     Indication: SCHIZOPHRENIA
     Route: 048
     Dates: start: 20030610, end: 20041015
  5. METFORMIN HCL [Concomitant]
  6. CITALOPRAM [Concomitant]

REACTIONS (6)
  - LOSS OF CONSCIOUSNESS [None]
  - PALLOR [None]
  - COLD SWEAT [None]
  - PNEUMONIA [None]
  - RESPIRATORY FAILURE [None]
  - LOWER RESPIRATORY TRACT INFECTION [None]
